FAERS Safety Report 9713720 (Version 1)
Quarter: 2013Q4

REPORT INFORMATION
  Report Type: Spontaneous
  Country: ZA (occurrence: ZA)
  Receive Date: 20131126
  Receipt Date: 20131126
  Transmission Date: 20140711
  Serious: Yes (Other)
  Sender: FDA-Public Use
  Company Number: ZA-PFIZER INC-2013330713

PATIENT
  Sex: Female

DRUGS (1)
  1. EPANUTIN [Suspect]
     Indication: EPILEPSY
     Route: 064

REACTIONS (2)
  - Maternal exposure during pregnancy [Unknown]
  - Epilepsy [Unknown]
